FAERS Safety Report 19828638 (Version 1)
Quarter: 2021Q3

REPORT INFORMATION
  Report Type: Spontaneous
  Country: JP (occurrence: JP)
  Receive Date: 20210914
  Receipt Date: 20210914
  Transmission Date: 20211014
  Serious: Yes (Other)
  Sender: FDA-Public Use
  Company Number: JP-GILEAD-2021-0547606

PATIENT
  Age: 50 Year
  Sex: Male
  Weight: 70 kg

DRUGS (10)
  1. DEXART [Concomitant]
     Active Substance: DEXAMETHASONE SODIUM PHOSPHATE
     Dosage: UNK
     Dates: start: 20210830, end: 20210901
  2. VEKLURY [Suspect]
     Active Substance: REMDESIVIR
     Dosage: 100 MG, QD
     Route: 041
     Dates: start: 20210828, end: 20210831
  3. HUSTAZOL [CLOPERASTINE FENDIZOATE] [Concomitant]
     Active Substance: CLOPERASTINE FENDIZOATE
  4. CALONAL [Concomitant]
     Active Substance: ACETAMINOPHEN
  5. ELIQUIS [Concomitant]
     Active Substance: APIXABAN
     Dosage: UNK
     Dates: start: 20210831
  6. OLUMIANT [Concomitant]
     Active Substance: BARICITINIB
     Dosage: UNK
     Dates: start: 20210830
  7. MUCODYNE [Concomitant]
     Active Substance: CARBOCYSTEINE
  8. TAKECAB [Concomitant]
     Active Substance: VONOPRAZAN FUMARATE
     Dosage: UNK
     Dates: start: 20210831
  9. PHYSIO 140 [Concomitant]
     Active Substance: CALCIUM GLUCONATE\DEXTROSE\MAGNESIUM CHLORIDE\POTASSIUM CHLORIDE\SODIUM ACETATE\SODIUM CHLORIDE\TRISODIUM CITRATE DIHYDRATE
  10. VEKLURY [Suspect]
     Active Substance: REMDESIVIR
     Indication: COVID-19
     Dosage: 200 MG, QD
     Route: 041
     Dates: start: 20210827, end: 20210827

REACTIONS (1)
  - Drug-induced liver injury [Not Recovered/Not Resolved]

NARRATIVE: CASE EVENT DATE: 20210901
